FAERS Safety Report 23432688 (Version 1)
Quarter: 2024Q1

REPORT INFORMATION
  Report Type: Spontaneous
  Country: None (occurrence: FR)
  Receive Date: 20240123
  Receipt Date: 20240123
  Transmission Date: 20240409
  Serious: Yes (Hospitalization)
  Sender: FDA-Public Use
  Company Number: FR-B.Braun Medical Inc.-2151771

PATIENT
  Age: 74 Year
  Sex: Male
  Weight: 80.5 kg

DRUGS (11)
  1. ACETAMINOPHEN [Suspect]
     Active Substance: ACETAMINOPHEN
     Indication: Pain
     Route: 048
     Dates: start: 20231215
  2. AMOXICILLIN [Suspect]
     Active Substance: AMOXICILLIN
  3. CEFTRIAXONE [Suspect]
     Active Substance: CEFTRIAXONE\CEFTRIAXONE SODIUM
  4. GENTAMICIN [Suspect]
     Active Substance: GENTAMICIN
  5. LANSOPRAZOLE [Suspect]
     Active Substance: LANSOPRAZOLE
  6. ONDANSETRON [Suspect]
     Active Substance: ONDANSETRON
  7. POTASSIUM CHLORIDE [Concomitant]
     Active Substance: POTASSIUM CHLORIDE
  8. FUROSEMIDE [Concomitant]
     Active Substance: FUROSEMIDE
  9. LOVENOX [Concomitant]
     Active Substance: ENOXAPARIN SODIUM
  10. POLYETHYLENE GLYCOLS [Concomitant]
     Active Substance: POLYETHYLENE GLYCOLS
  11. SPASFON [Concomitant]

REACTIONS (3)
  - Rash maculo-papular [None]
  - Epidermolysis [None]
  - Off label use [None]
